FAERS Safety Report 4967569-X (Version None)
Quarter: 2006Q2

REPORT INFORMATION
  Report Type: 
  Country: None (occurrence: None)
  Receive Date: 20060410
  Receipt Date: 20060406
  Transmission Date: 20061013
  Serious: Yes (Other)
  Sender: FDA-Public Use
  Company Number: FR-GLAXOSMITHKLINE-B0419541A

PATIENT
  Age: 93 Year
  Sex: Male

DRUGS (3)
  1. ZELITREX [Suspect]
     Indication: HERPES ZOSTER
     Dosage: 500MG SIX TIMES PER DAY
     Route: 048
     Dates: start: 20060404, end: 20060405
  2. RISPERDAL [Concomitant]
  3. EQUANIL [Concomitant]

REACTIONS (3)
  - CONDITION AGGRAVATED [None]
  - CONFUSIONAL STATE [None]
  - DEMENTIA [None]
